FAERS Safety Report 8460770-2 (Version None)
Quarter: 2012Q2

REPORT INFORMATION
  Report Type: 
  Country: None (occurrence: None)
  Receive Date: 20120622
  Receipt Date: 20120619
  Transmission Date: 20120825
  Serious: Yes (Hospitalization, Other)
  Sender: FDA-Public Use
  Company Number: US-AMGEN-USASP2011059636

PATIENT
  Age: 51 Year
  Sex: Male
  Weight: 108.84 kg

DRUGS (2)
  1. ENBREL [Suspect]
     Indication: PSORIASIS
     Dosage: 50 MG, QWK
     Dates: start: 20100918
  2. ENBREL [Suspect]
     Dosage: 50 MG, 2 TIMES/WK
     Route: 058
     Dates: start: 20101010, end: 20101223

REACTIONS (4)
  - INJECTION SITE PAIN [None]
  - ABDOMINAL DISCOMFORT [None]
  - DYSPNOEA [None]
  - ACUTE MYOCARDIAL INFARCTION [None]
